FAERS Safety Report 10262371 (Version 3)
Quarter: 2015Q1

REPORT INFORMATION
  Report Type: Spontaneous
  Country: US (occurrence: US)
  Receive Date: 20140626
  Receipt Date: 20150326
  Transmission Date: 20150720
  Serious: Yes (Hospitalization, Other)
  Sender: FDA-Public Use
  Company Number: US-PFIZER INC-2014171934

PATIENT
  Age: 79 Year
  Sex: Female
  Weight: 86.17 kg

DRUGS (3)
  1. METOPROLOL [Concomitant]
     Active Substance: METOPROLOL
     Dosage: UNK
     Dates: start: 2007
  2. SUTENT [Suspect]
     Active Substance: SUNITINIB MALATE
     Dosage: UNK
     Route: 048
     Dates: start: 201406
  3. SUTENT [Suspect]
     Active Substance: SUNITINIB MALATE
     Indication: RENAL CELL CARCINOMA
     Dosage: 37.5 MG (THREE CAPSULE OF 12.5 MG), 1X/DAY
     Route: 048
     Dates: start: 2008, end: 201405

REACTIONS (2)
  - Infection [Recovered/Resolved]
  - Arthropathy [Recovered/Resolved]

NARRATIVE: CASE EVENT DATE: 20140605
